FAERS Safety Report 8950063 (Version 1)
Quarter: 2012Q4

REPORT INFORMATION
  Report Type: 
  Country: US (occurrence: US)
  Receive Date: 20121205
  Receipt Date: 20121205
  Transmission Date: 20130627
  Serious: No
  Sender: FDA-Public Use
  Company Number: US-ASTELLAS-2012US009735

PATIENT
  Age: 74 Year
  Sex: Male

DRUGS (1)
  1. TARCEVA [Suspect]
     Indication: LUNG NEOPLASM MALIGNANT
     Dosage: 100 mg, UID/QD
     Route: 048
     Dates: start: 20120911

REACTIONS (3)
  - Incorrect dose administered [Unknown]
  - Rash [Unknown]
  - Acne [Unknown]
